FAERS Safety Report 10233064 (Version 1)
Quarter: 2014Q2

REPORT INFORMATION
  Report Type: Spontaneous
  Country: US (occurrence: US)
  Receive Date: 20140612
  Receipt Date: 20140612
  Transmission Date: 20141212
  Serious: Yes (Other)
  Sender: FDA-Public Use
  Company Number: US-PFIZER INC-2014157416

PATIENT
  Age: 65 Year
  Sex: Female
  Weight: 84.35 kg

DRUGS (5)
  1. AROMASIN [Suspect]
     Indication: BREAST CANCER METASTATIC
     Dosage: 25 MG, 1X/DAY
     Route: 048
     Dates: start: 201202
  2. BACTRIM [Concomitant]
     Indication: BRONCHITIS CHRONIC
     Dosage: 2X/DAY FOR 10 DAYS
  3. BACTRIM [Concomitant]
     Indication: PNEUMONITIS
  4. MEDROL [Concomitant]
     Indication: BRONCHITIS CHRONIC
     Dosage: UNK
  5. MEDROL [Concomitant]
     Indication: PNEUMONITIS

REACTIONS (3)
  - Sinusitis [Recovering/Resolving]
  - Respiratory tract congestion [Recovering/Resolving]
  - Malaise [Recovering/Resolving]
